FAERS Safety Report 12080655 (Version 2)
Quarter: 2016Q1

REPORT INFORMATION
  Report Type: Spontaneous
  Country: US (occurrence: US)
  Receive Date: 20160216
  Receipt Date: 20160321
  Transmission Date: 20160526
  Serious: Yes (Other)
  Sender: FDA-Public Use
  Company Number: US-MYLANLABS-2016M1006839

PATIENT

DRUGS (3)
  1. METFORMIN [Suspect]
     Active Substance: METFORMIN HYDROCHLORIDE
     Indication: DIABETES MELLITUS
     Dosage: UNK
     Dates: start: 201506
  2. PROPRANOLOL HYDROCHLORIDE TABLETS, USP [Suspect]
     Active Substance: PROPRANOLOL HYDROCHLORIDE
     Dosage: 40 MG, BID
     Dates: end: 20160120
  3. PROPRANOLOL HYDROCHLORIDE. [Suspect]
     Active Substance: PROPRANOLOL HYDROCHLORIDE
     Dosage: 40 MG, BID
     Dates: end: 20160120

REACTIONS (11)
  - Headache [Unknown]
  - Dehydration [Unknown]
  - Blood creatinine increased [Unknown]
  - Cold sweat [Unknown]
  - Nervousness [Unknown]
  - Feeling cold [Unknown]
  - Palpitations [Unknown]
  - Heart rate increased [Unknown]
  - Drug withdrawal syndrome [Unknown]
  - Hypotension [Unknown]
  - Loss of consciousness [Recovered/Resolved]

NARRATIVE: CASE EVENT DATE: 20160119
